FAERS Safety Report 15634653 (Version 2)
Quarter: 2018Q4

REPORT INFORMATION
  Report Type: Report from Study
  Country: US (occurrence: US)
  Receive Date: 20181119
  Receipt Date: 20181130
  Transmission Date: 20190205
  Serious: Yes (Hospitalization, Other)
  Sender: FDA-Public Use
  Company Number: US-ACTELION-A-NJ2018-182110

PATIENT
  Age: 56 Year
  Sex: Female

DRUGS (2)
  1. UPTRAVI [Suspect]
     Active Substance: SELEXIPAG
     Indication: PULMONARY ARTERIAL HYPERTENSION
     Dosage: 1200 MCG, BID
     Route: 048
     Dates: start: 20171101, end: 20181024
  2. MILRINONE [Concomitant]
     Active Substance: MILRINONE
     Dosage: 0.375 MCG/KG

REACTIONS (4)
  - Heart transplant [Unknown]
  - Cardiac failure [Unknown]
  - Ventricular assist device insertion [Unknown]
  - Right ventricular failure [Unknown]

NARRATIVE: CASE EVENT DATE: 20180929
